FAERS Safety Report 11411679 (Version 5)
Quarter: 2020Q1

REPORT INFORMATION
  Report Type: Spontaneous
  Country: US (occurrence: US)
  Receive Date: 20150824
  Receipt Date: 20200113
  Transmission Date: 20200409
  Serious: Yes (Hospitalization)
  Sender: FDA-Public Use
  Company Number: US-ENDO PHARMACEUTICALS INC.-2015-002458

PATIENT
  Age: 33 Year
  Sex: Male
  Weight: 91 kg

DRUGS (4)
  1. XIAFLEX [Suspect]
     Active Substance: COLLAGENASE CLOSTRIDIUM HISTOLYTICUM
     Dosage: 0.58 MG, ONCE EVERY 6WKS (CYCLE 2, 2 INJECTIONS)
     Route: 026
  2. XIAFLEX [Suspect]
     Active Substance: COLLAGENASE CLOSTRIDIUM HISTOLYTICUM
     Dosage: 0.58 MG, ONCE EVERY 6WKS (CYCLE 1, 2 INJECTIONS)
     Route: 026
     Dates: start: 20150224
  3. XIAFLEX [Suspect]
     Active Substance: COLLAGENASE CLOSTRIDIUM HISTOLYTICUM
     Indication: PEYRONIE^S DISEASE
     Dosage: 0.58 MG, ONCE EVERY 6WKS (CYCLE 3, INJECTION 2)
     Route: 026
     Dates: start: 20150715, end: 20150715
  4. XIAFLEX [Suspect]
     Active Substance: COLLAGENASE CLOSTRIDIUM HISTOLYTICUM
     Dosage: 0.58 MG, ONCE EVERY 6WKS (CYCLE 3, INJECTION 1)
     Route: 026
     Dates: start: 2015

REACTIONS (2)
  - Corpora cavernosa surgery [Recovered/Resolved]
  - Fracture of penis [Recovered/Resolved]

NARRATIVE: CASE EVENT DATE: 20150811
